FAERS Safety Report 9510078 (Version 1)
Quarter: 2013Q3

REPORT INFORMATION
  Report Type: Spontaneous
  Country: US (occurrence: US)
  Receive Date: 20130909
  Receipt Date: 20130909
  Transmission Date: 20140515
  Serious: No
  Sender: FDA-Public Use
  Company Number: US-BRISTOL-MYERS SQUIBB COMPANY-17125907

PATIENT
  Sex: Female

DRUGS (9)
  1. ABILIFY TABS 5 MG [Suspect]
  2. ZOLOFT [Concomitant]
  3. ZOCOR [Concomitant]
  4. METFORMIN [Concomitant]
  5. LEVOXINE [Concomitant]
  6. HYDROCHLOROTHIAZIDE [Concomitant]
  7. ZETIA [Concomitant]
  8. XANAX [Concomitant]
  9. KLONOPIN [Concomitant]

REACTIONS (2)
  - Drug dose omission [Unknown]
  - Malaise [Unknown]
